FAERS Safety Report 9221069 (Version 1)
Quarter: 2013Q2

REPORT INFORMATION
  Report Type: Spontaneous
  Country: US (occurrence: US)
  Receive Date: 20130409
  Receipt Date: 20130409
  Transmission Date: 20140414
  Serious: Yes (Hospitalization)
  Sender: FDA-Public Use
  Company Number: US-FRI-1000040309

PATIENT
  Age: 71 Year
  Sex: Male
  Weight: 87.09 kg

DRUGS (9)
  1. DALIRESP [Suspect]
     Indication: CHRONIC OBSTRUCTIVE PULMONARY DISEASE
     Dosage: 500 MCG
     Route: 048
     Dates: start: 20110711
  2. SINGULAIR [Concomitant]
     Indication: CHRONIC OBSTRUCTIVE PULMONARY DISEASE
  3. ADVAIR [Concomitant]
     Indication: CHRONIC OBSTRUCTIVE PULMONARY DISEASE
     Dosage: 500/50 MCG TWICE DAILY
     Route: 055
  4. FUROSEMIDE [Concomitant]
  5. ASPIRIN [Concomitant]
  6. LEVOTHYROXINE [Concomitant]
  7. SPIRIVA [Concomitant]
     Dosage: 1 PUFF DAILY
  8. PROAIR HFA [Concomitant]
     Dosage: 1-2 PUFFS EVERY FOUR HOURS AS NEEDED
  9. CLARINEX [Concomitant]

REACTIONS (4)
  - Atrial tachycardia [Unknown]
  - Supraventricular tachycardia [Unknown]
  - Ventricular extrasystoles [Unknown]
  - Dyspepsia [Unknown]
